FAERS Safety Report 20783560 (Version 3)
Quarter: 2022Q3

REPORT INFORMATION
  Report Type: Spontaneous
  Country: AU (occurrence: AU)
  Receive Date: 20220504
  Receipt Date: 20220805
  Transmission Date: 20221027
  Serious: Yes (Death, Other)
  Sender: FDA-Public Use
  Company Number: AU-SA-SAC20220426002200

PATIENT
  Age: 48 Year

DRUGS (3)
  1. CAPLACIZUMAB [Suspect]
     Active Substance: CAPLACIZUMAB
     Dosage: UNK
     Dates: end: 20220425
  2. CAPLACIZUMAB [Suspect]
     Active Substance: CAPLACIZUMAB
     Dosage: UNK
     Dates: start: 202204, end: 20220429
  3. HEPARIN [Concomitant]
     Active Substance: HEPARIN SODIUM
     Dosage: UNK
     Dates: start: 202204

REACTIONS (4)
  - Brain oedema [Fatal]
  - Brain herniation [Fatal]
  - Wound secretion [Unknown]
  - Catheter site haemorrhage [Unknown]

NARRATIVE: CASE EVENT DATE: 20220101
